FAERS Safety Report 7611835-6 (Version None)
Quarter: 2011Q3

REPORT INFORMATION
  Report Type: 
  Country: None (occurrence: None)
  Receive Date: 20110715
  Receipt Date: 20110606
  Transmission Date: 20111222
  Serious: Yes (Other)
  Sender: FDA-Public Use
  Company Number: US-BAXTER-2010BH003715

PATIENT
  Age: 28 Year
  Sex: Female
  Weight: 79 kg

DRUGS (7)
  1. HEPARIN SODIUM INJECTION [Suspect]
     Indication: THROMBOSIS
     Route: 058
     Dates: start: 20071212, end: 20071219
  2. HEPARIN SODIUM 5,000 UNITS IN DEXTROSE 5% [Suspect]
     Route: 042
     Dates: start: 20071216
  3. PRENATAL VITAMINS [Concomitant]
     Indication: PRODUCT USED FOR UNKNOWN INDICATION
     Route: 065
  4. HEPARIN SODIUM 5,000 UNITS IN DEXTROSE 5% [Suspect]
     Indication: DEEP VEIN THROMBOSIS
     Route: 042
     Dates: start: 20071211, end: 20071212
  5. HEPARIN SODIUM 5,000 UNITS IN DEXTROSE 5% [Suspect]
     Route: 042
     Dates: start: 20071214
  6. HEPARIN SODIUM 5,000 UNITS IN DEXTROSE 5% [Suspect]
     Route: 042
     Dates: start: 20071215
  7. HEPARIN SODIUM 5,000 UNITS IN DEXTROSE 5% [Suspect]
     Route: 042
     Dates: start: 20071213, end: 20071218

REACTIONS (9)
  - ABDOMINAL PAIN UPPER [None]
  - PERITONEAL HAEMORRHAGE [None]
  - CHEST PAIN [None]
  - ANAEMIA [None]
  - DYSARTHRIA [None]
  - VOMITING [None]
  - HYPOTENSION [None]
  - DYSPNOEA [None]
  - HEART RATE DECREASED [None]
